FAERS Safety Report 5308686-4 (Version None)
Quarter: 2007Q2

REPORT INFORMATION
  Report Type: 
  Country: None (occurrence: None)
  Receive Date: 20070426
  Receipt Date: 20070424
  Transmission Date: 20071010
  Serious: Yes (Death)
  Sender: FDA-Public Use
  Company Number: US-GLAXOSMITHKLINE-A0648589A

PATIENT
  Age: 46 Year
  Sex: Female

DRUGS (1)
  1. PAXIL CR [Suspect]
     Indication: DRUG USE FOR UNKNOWN INDICATION

REACTIONS (1)
  - COMPLETED SUICIDE [None]
